FAERS Safety Report 8957703 (Version 1)
Quarter: 2012Q4

REPORT INFORMATION
  Report Type: 
  Country: US (occurrence: US)
  Receive Date: 20121211
  Receipt Date: 20121211
  Transmission Date: 20130627
  Serious: No
  Sender: FDA-Public Use
  Company Number: US-B.I. PHARMACEUTICALS,INC./RIDGEFIELD-2012-BI-02479BP

PATIENT
  Sex: Male
  Weight: 66.68 kg

DRUGS (8)
  1. PRADAXA [Suspect]
     Dates: end: 201204
  2. METOPROLOL [Concomitant]
     Indication: ARRHYTHMIA
  3. AMIODARONE [Concomitant]
     Indication: CARDIAC DISORDER
     Route: 048
     Dates: start: 2012
  4. AMIODARONE [Concomitant]
     Dosage: 100 mg
     Route: 048
     Dates: start: 2012
  5. AVODART [Concomitant]
     Indication: PROSTATOMEGALY
     Dosage: 0.5 mg
     Route: 048
     Dates: start: 2002
  6. AVODART [Concomitant]
     Indication: NEOPLASM PROPHYLAXIS
  7. LASIX [Concomitant]
     Indication: OEDEMA
     Route: 048
  8. POTASSIUM [Concomitant]
     Indication: MEDICAL DIET
     Route: 048

REACTIONS (3)
  - Asthenia [Not Recovered/Not Resolved]
  - Dizziness [Not Recovered/Not Resolved]
  - Joint swelling [Not Recovered/Not Resolved]
